FAERS Safety Report 17411342 (Version 1)
Quarter: 2020Q1

REPORT INFORMATION
  Report Type: Report from Study
  Country: None (occurrence: US)
  Receive Date: 20200212
  Receipt Date: 20200212
  Transmission Date: 20200409
  Serious: Yes (Other)
  Sender: FDA-Public Use
  Company Number: US-ABBVIE-05P-163-0291917-00

PATIENT
  Sex: Female

DRUGS (5)
  1. MAXZIDE [Concomitant]
     Active Substance: HYDROCHLOROTHIAZIDE\TRIAMTERENE
     Indication: BLOOD PRESSURE INCREASED
     Route: 048
     Dates: start: 2000
  2. ATENOLOL. [Concomitant]
     Active Substance: ATENOLOL
     Indication: BLOOD PRESSURE INCREASED
     Route: 048
     Dates: start: 2002
  3. SYNTHROID [Suspect]
     Active Substance: LEVOTHYROXINE SODIUM
     Route: 048
     Dates: start: 2003
  4. SYNTHROID [Suspect]
     Active Substance: LEVOTHYROXINE SODIUM
     Route: 048
     Dates: start: 2001, end: 2003
  5. SYNTHROID [Suspect]
     Active Substance: LEVOTHYROXINE SODIUM
     Indication: HYPOTHYROIDISM
     Route: 048
     Dates: start: 1993, end: 2001

REACTIONS (8)
  - Peripheral swelling [Not Recovered/Not Resolved]
  - Swelling face [Not Recovered/Not Resolved]
  - Thyroid cancer [Recovered/Resolved]
  - Fatigue [Not Recovered/Not Resolved]
  - Drug ineffective [Unknown]
  - Blood thyroid stimulating hormone abnormal [Recovered/Resolved]
  - Autoimmune thyroiditis [None]
  - Blood thyroid stimulating hormone increased [Not Recovered/Not Resolved]

NARRATIVE: CASE EVENT DATE: 1993
